FAERS Safety Report 24009778 (Version 1)
Quarter: 2024Q2

REPORT INFORMATION
  Report Type: Spontaneous
  Country: GR (occurrence: GR)
  Receive Date: 20240625
  Receipt Date: 20240625
  Transmission Date: 20240715
  Serious: No
  Sender: FDA-Public Use
  Company Number: GR-PFIZER INC-PV202400080756

PATIENT
  Age: 10 Year
  Sex: Male

DRUGS (1)
  1. GENOTROPIN [Suspect]
     Active Substance: SOMATROPIN
     Dosage: UNK
     Route: 058
     Dates: start: 202103

REACTIONS (3)
  - Device use error [Unknown]
  - Poor quality device used [Unknown]
  - Device breakage [Unknown]

NARRATIVE: CASE EVENT DATE: 20240601
